FAERS Safety Report 10250054 (Version 1)
Quarter: 2014Q2

REPORT INFORMATION
  Report Type: Spontaneous
  Country: US (occurrence: US)
  Receive Date: 20140620
  Receipt Date: 20140620
  Transmission Date: 20141212
  Serious: No
  Sender: FDA-Public Use
  Company Number: US-BRISTOL-MYERS SQUIBB COMPANY-20612040

PATIENT
  Age: 75 Year
  Sex: Female
  Weight: 45.35 kg

DRUGS (3)
  1. ELIQUIS [Suspect]
     Dates: start: 20140406
  2. ALPRAZOLAM [Concomitant]
  3. FLECAINIDE [Concomitant]

REACTIONS (2)
  - Malaise [Unknown]
  - Dizziness [Unknown]
